FAERS Safety Report 10375522 (Version 2)
Quarter: 2014Q4

REPORT INFORMATION
  Report Type: Spontaneous
  Country: US (occurrence: US)
  Receive Date: 20140811
  Receipt Date: 20141030
  Transmission Date: 20150528
  Serious: Yes (Other)
  Sender: FDA-Public Use
  Company Number: US-FRI-1000069680

PATIENT
  Age: 69 Year
  Sex: Female

DRUGS (3)
  1. ALBUTEROL. [Concomitant]
     Active Substance: ALBUTEROL
  2. DALIRESP [Suspect]
     Active Substance: ROFLUMILAST
     Indication: DYSPNOEA
     Dosage: 500 MCG PRN
     Route: 048
     Dates: start: 2014
  3. DALIRESP [Suspect]
     Active Substance: ROFLUMILAST
     Indication: PNEUMONIA

REACTIONS (3)
  - Anaemia [Unknown]
  - Off label use [Unknown]
  - Plasma cell myeloma [Not Recovered/Not Resolved]

NARRATIVE: CASE EVENT DATE: 2014
